FAERS Safety Report 14959015 (Version 1)
Quarter: 2018Q2

REPORT INFORMATION
  Report Type: Spontaneous
  Country: DE (occurrence: DE)
  Receive Date: 20180531
  Receipt Date: 20180531
  Transmission Date: 20180711
  Serious: Yes (Congenital Anomaly, Other)
  Sender: FDA-Public Use
  Company Number: DE-MYLANLABS-2018M1034918

PATIENT
  Age: 1 Day
  Sex: Female
  Weight: 2.35 kg

DRUGS (1)
  1. LAMIVUDINE. [Suspect]
     Active Substance: LAMIVUDINE
     Indication: CHRONIC HEPATITIS B
     Dosage: 100 [MG/D ]
     Route: 064
     Dates: start: 20161204, end: 20170828

REACTIONS (9)
  - Persistent left superior vena cava [Not Recovered/Not Resolved]
  - Small for dates baby [Recovered/Resolved]
  - Pulmonary valve stenosis congenital [Not Recovered/Not Resolved]
  - Atrioventricular septal defect [Not Recovered/Not Resolved]
  - Ventricular hypoplasia [Not Recovered/Not Resolved]
  - Foetal exposure during pregnancy [Recovered/Resolved]
  - Patent ductus arteriosus [Unknown]
  - Bicuspid pulmonary valve [Not Recovered/Not Resolved]
  - Double outlet right ventricle [Not Recovered/Not Resolved]

NARRATIVE: CASE EVENT DATE: 20170828
